FAERS Safety Report 11644437 (Version 1)
Quarter: 2015Q4

REPORT INFORMATION
  Report Type: Spontaneous
  Country: US (occurrence: None)
  Receive Date: 20151019
  Receipt Date: 20151019
  Transmission Date: 20160304
  Serious: No
  Sender: FDA-Public Use
  Company Number: None

PATIENT
  Sex: Female

DRUGS (34)
  1. ALPRAZOLAM. [Concomitant]
     Active Substance: ALPRAZOLAM
  2. DIAZEPAM. [Concomitant]
     Active Substance: DIAZEPAM
  3. MIRTAZAPINE. [Concomitant]
     Active Substance: MIRTAZAPINE
  4. VITAMIN D3 [Concomitant]
     Active Substance: CHOLECALCIFEROL
  5. PREDNISONE. [Concomitant]
     Active Substance: PREDNISONE
  6. TRIAMT/HCTZ [Concomitant]
     Active Substance: HYDROCHLOROTHIAZIDE\TRIAMTERENE
  7. AMLODIPINE [Concomitant]
     Active Substance: AMLODIPINE BESYLATE
  8. ATENOLOL. [Concomitant]
     Active Substance: ATENOLOL
  9. VITAMIN B COMPLEX [Concomitant]
     Active Substance: CYANOCOBALAMIN\DEXPANTHENOL\NIACINAMIDE\PYRIDOXINE HYDROCHLORIDE\RIBOFLAVIN 5^-PHOSPHATE SODIUM\THIAMINE HYDROCHLORIDE\VITAMIN B COMPLEX
  10. BUMETANIDE. [Concomitant]
     Active Substance: BUMETANIDE
  11. RANITIDINE [Concomitant]
     Active Substance: RANITIDINE\RANITIDINE HYDROCHLORIDE
  12. SERTRALINE [Concomitant]
     Active Substance: SERTRALINE HYDROCHLORIDE
  13. BENZONATATE. [Concomitant]
     Active Substance: BENZONATATE
  14. FUROSEMIDE. [Concomitant]
     Active Substance: FUROSEMIDE
  15. LATANOPROST. [Concomitant]
     Active Substance: LATANOPROST
  16. MEOPROL [Concomitant]
  17. PRAVASTATIN [Concomitant]
     Active Substance: PRAVASTATIN\PRAVASTATIN SODIUM
  18. XALATAN SOLUTION [Concomitant]
  19. CLONAZEPAM. [Concomitant]
     Active Substance: CLONAZEPAM
  20. IRON [Concomitant]
     Active Substance: IRON
  21. SPRYCEL [Suspect]
     Active Substance: DASATINIB
     Indication: LEUKAEMIA
     Route: 048
     Dates: start: 20090307
  22. CITALOPRAM [Concomitant]
     Active Substance: CITALOPRAM HYDROBROMIDE
  23. LASIX [Concomitant]
     Active Substance: FUROSEMIDE
  24. DOXYCLYCL HYC [Concomitant]
  25. GENTAMICIN. [Concomitant]
     Active Substance: GENTAMICIN
  26. HYDROCORT SUP [Concomitant]
  27. LEVOTHYROXIN [Concomitant]
     Active Substance: LEVOTHYROXINE
  28. OMEPRAZOLE. [Concomitant]
     Active Substance: OMEPRAZOLE
  29. POT CL MICR TAB [Concomitant]
  30. BISACODYL. [Concomitant]
     Active Substance: BISACODYL
  31. FLECAINIDE [Concomitant]
     Active Substance: FLECAINIDE
  32. GARAMYCIN [Concomitant]
     Active Substance: GENTAMICIN SULFATE
  33. POT BICARB [Concomitant]
  34. VITAMIN C [Concomitant]
     Active Substance: ASCORBIC ACID

REACTIONS (1)
  - Pulmonary oedema [None]

NARRATIVE: CASE EVENT DATE: 2012
